FAERS Safety Report 12092512 (Version 1)
Quarter: 2016Q1

REPORT INFORMATION
  Report Type: Spontaneous
  Country: US (occurrence: US)
  Receive Date: 20160219
  Receipt Date: 20160219
  Transmission Date: 20160526
  Serious: Yes (Other)
  Sender: FDA-Public Use
  Company Number: US-BEH-2016058801

PATIENT
  Sex: Female
  Weight: 54 kg

DRUGS (7)
  1. DIPHENHYDRAMINE. [Concomitant]
     Active Substance: DIPHENHYDRAMINE
  2. HIZENTRA [Suspect]
     Active Substance: HUMAN IMMUNOGLOBULIN G
     Indication: IMMUNODEFICIENCY COMMON VARIABLE
     Route: 058
     Dates: start: 20120723
  3. IBUPROFEN. [Concomitant]
     Active Substance: IBUPROFEN
  4. VICKS [Concomitant]
     Active Substance: MENTHOL\OXYMETAZOLINE HYDROCHLORIDE\PHENYLEPHRINE HYDROCHLORIDE
  5. EPIPEN [Concomitant]
     Active Substance: EPINEPHRINE
  6. ACETAMINOPHEN. [Concomitant]
     Active Substance: ACETAMINOPHEN
  7. LIDOCAINE/PRILOCAINE [Concomitant]

REACTIONS (1)
  - Atypical pneumonia [Unknown]
